FAERS Safety Report 16545443 (Version 1)
Quarter: 2019Q3

REPORT INFORMATION
  Report Type: Spontaneous
  Country: US (occurrence: US)
  Receive Date: 20190708
  Receipt Date: 20190708
  Transmission Date: 20191004
  Serious: Yes (Hospitalization)
  Sender: FDA-Public Use
  Company Number: None

PATIENT
  Age: 62 Year
  Sex: Female
  Weight: 79.8 kg

DRUGS (1)
  1. CLOZAPINE. [Suspect]
     Active Substance: CLOZAPINE

REACTIONS (12)
  - Tachycardia [None]
  - Pain [None]
  - Confusional state [None]
  - Pyrexia [None]
  - Mental status changes [None]
  - Pneumonia [None]
  - Myocarditis [None]
  - Brain natriuretic peptide increased [None]
  - Malaise [None]
  - Fall [None]
  - Acute myocardial infarction [None]
  - Troponin increased [None]

NARRATIVE: CASE EVENT DATE: 20190513
